FAERS Safety Report 7999321-5 (Version None)
Quarter: 2011Q4

REPORT INFORMATION
  Report Type: 
  Country: None (occurrence: None)
  Receive Date: 20111221
  Receipt Date: 20111216
  Transmission Date: 20120403
  Serious: Yes (Death)
  Sender: FDA-Public Use
  Company Number: US-ASTRAZENECA-2011SE76864

PATIENT
  Age: 72 Year
  Sex: Female

DRUGS (2)
  1. ATENOLOL [Suspect]
     Route: 048
  2. AMLODIPINE [Suspect]
     Route: 048

REACTIONS (1)
  - TOXICITY TO VARIOUS AGENTS [None]
